FAERS Safety Report 4771988-4 (Version None)
Quarter: 2005Q3

REPORT INFORMATION
  Report Type: 
  Country: None (occurrence: None)
  Receive Date: 20050916
  Receipt Date: 20050912
  Transmission Date: 20060218
  Serious: Yes (Other)
  Sender: FDA-Public Use
  Company Number: IL-MERCK-0509ISR00005

PATIENT
  Age: 86 Year
  Sex: Male

DRUGS (1)
  1. INVANZ [Suspect]
     Indication: SKIN ULCER
     Route: 042
     Dates: start: 20050701, end: 20050701

REACTIONS (4)
  - PYREXIA [None]
  - RASH [None]
  - RENAL FAILURE ACUTE [None]
  - VASCULITIS [None]
